FAERS Safety Report 9232007 (Version 1)
Quarter: 2013Q2

REPORT INFORMATION
  Report Type: Spontaneous
  Country: US (occurrence: US)
  Receive Date: 20130415
  Receipt Date: 20130415
  Transmission Date: 20140414
  Serious: No
  Sender: FDA-Public Use
  Company Number: US-B.I. PHARMACEUTICALS,INC./RIDGEFIELD-2013-BI-08688BP

PATIENT
  Age: 80 Year
  Sex: Female

DRUGS (11)
  1. SPIRIVA [Suspect]
     Indication: CHRONIC OBSTRUCTIVE PULMONARY DISEASE
     Dosage: 18 MCG
     Route: 055
     Dates: start: 20130326
  2. ASPIRIN [Concomitant]
     Indication: CEREBROVASCULAR ACCIDENT PROPHYLAXIS
     Dosage: 325 MG
     Route: 048
  3. ZYRTEC [Concomitant]
     Indication: SEASONAL ALLERGY
     Dosage: 10 MG
     Route: 048
  4. BISOPROLOL [Concomitant]
     Indication: HYPERTENSION
     Dosage: 5 MG
     Route: 048
  5. LEVOXYL [Concomitant]
     Indication: HYPOTHYROIDISM
     Dosage: 50 MG
     Route: 048
  6. VOLTAREN GEL [Concomitant]
     Indication: ARTHRITIS
     Route: 061
  7. HYDROCODONE [Concomitant]
     Indication: ARTHRITIS
     Route: 048
  8. CLOPIDOGREL [Concomitant]
     Indication: ARTERIOSCLEROSIS
     Dosage: 75 MG
     Route: 048
  9. VITAMIN D [Concomitant]
     Indication: VITAMIN D DECREASED
     Route: 048
  10. PANTOPRAZOLE [Concomitant]
     Indication: GASTROOESOPHAGEAL REFLUX DISEASE
     Dosage: 40 MG
     Route: 048
  11. CYMBALTA [Concomitant]
     Indication: DEPRESSION
     Dosage: 120 MG
     Route: 048

REACTIONS (2)
  - Rhinorrhoea [Not Recovered/Not Resolved]
  - Fatigue [Not Recovered/Not Resolved]
